FAERS Safety Report 21568854 (Version 2)
Quarter: 2023Q1

REPORT INFORMATION
  Report Type: Spontaneous
  Country: CA (occurrence: CA)
  Receive Date: 20221108
  Receipt Date: 20230105
  Transmission Date: 20230417
  Serious: Yes (Other)
  Sender: FDA-Public Use
  Company Number: CA-CELLTRION INC.-2022CA015321

PATIENT

DRUGS (10)
  1. INFLECTRA [Suspect]
     Active Substance: INFLIXIMAB-DYYB
     Indication: Crohn^s disease
     Dosage: 5 MG/KG, INDUCTION: AT WEEKS 0. 2. 6 - DICONTINUED
     Route: 042
     Dates: start: 20210909
  2. INFLECTRA [Suspect]
     Active Substance: INFLIXIMAB-DYYB
     Dosage: 5 MG/KG, INDUCTION: AT WEEKS 0. 2. 6 - DICONTINUED
     Route: 042
     Dates: start: 20211021
  3. INFLECTRA [Suspect]
     Active Substance: INFLIXIMAB-DYYB
     Dosage: 5 MG/KG, INDUCTION AT WEEK 0, 2 AND 6, THEN EVERY 8 WEEKS - NOT YET STARTED
     Route: 042
  4. INFLECTRA [Suspect]
     Active Substance: INFLIXIMAB-DYYB
     Dosage: 5 MG/KG, NOT YET STARTED
     Route: 042
  5. AMLODIPINE [Concomitant]
     Active Substance: AMLODIPINE BESYLATE
     Dosage: 1 DF, DOSAGE INFO IS NOT AVAILABLE
     Route: 065
  6. VITAMIN D NOS [Concomitant]
     Active Substance: VITAMIN D NOS
     Dosage: 1 DF, DOSAGE INFO IS NOT AVAILABLE
     Route: 065
  7. VENOFER [Concomitant]
     Active Substance: IRON SUCROSE
     Dosage: 1 DF, EVERY 2 MONTHS
     Route: 042
  8. BENADRYL [Concomitant]
     Active Substance: DIPHENHYDRAMINE HYDROCHLORIDE
     Indication: Premedication
     Dosage: 25 MG, BEFORE INFUSION
     Route: 048
  9. HYDROCORTISONE [Concomitant]
     Active Substance: HYDROCORTISONE
     Indication: Premedication
     Dosage: 50 MG, 15-30 MINUTES BEFORE INFUSION
     Route: 042
  10. ADALIMUMAB [Concomitant]
     Active Substance: ADALIMUMAB
     Dosage: DOSAGE NOT AVAILABLE
     Dates: start: 2021, end: 2022

REACTIONS (6)
  - Lung cancer metastatic [Not Recovered/Not Resolved]
  - Urticaria [Unknown]
  - Condition aggravated [Unknown]
  - Faecal calprotectin increased [Unknown]
  - Product dose omission issue [Unknown]
  - Off label use [Unknown]

NARRATIVE: CASE EVENT DATE: 20220101
